FAERS Safety Report 5611706-0 (Version None)
Quarter: 2008Q1

REPORT INFORMATION
  Report Type: 
  Country: None (occurrence: None)
  Receive Date: 20080201
  Receipt Date: 20080129
  Transmission Date: 20080703
  Serious: Yes (Disabling, Other)
  Sender: FDA-Public Use
  Company Number: GB-MERCK-0801GBR00117

PATIENT
  Age: 76 Year
  Sex: Female
  Weight: 67 kg

DRUGS (1)
  1. ZOCOR [Suspect]
     Indication: HYPERLIPIDAEMIA
     Route: 048
     Dates: start: 20070815, end: 20071220

REACTIONS (2)
  - APHONIA [None]
  - MYALGIA [None]
